FAERS Safety Report 9675578 (Version 5)
Quarter: 2014Q2

REPORT INFORMATION
  Report Type: Spontaneous
  Country: JP (occurrence: JP)
  Receive Date: 20131107
  Receipt Date: 20140422
  Transmission Date: 20141212
  Serious: Yes (Other)
  Sender: FDA-Public Use
  Company Number: JP-OTSUKA-JP-2013-14745

PATIENT
  Age: 90 Year
  Sex: Female

DRUGS (2)
  1. PLETAAL [Suspect]
     Indication: CEREBRAL INFARCTION
     Dosage: 2 DF DOSAGE FORM, DAILY DOSE
     Route: 048
  2. BAYASPIRIN [Concomitant]
     Route: 048

REACTIONS (10)
  - Suicidal ideation [Unknown]
  - Bradycardia [Unknown]
  - Angina pectoris [Unknown]
  - Weight decreased [Unknown]
  - Blood cholesterol increased [Unknown]
  - Hyperchlorhydria [Unknown]
  - Dysgeusia [Unknown]
  - Vomiting [Unknown]
  - Decreased appetite [Unknown]
  - Insomnia [Unknown]
